FAERS Safety Report 5418081-5 (Version None)
Quarter: 2007Q3

REPORT INFORMATION
  Report Type: 
  Country: None (occurrence: None)
  Receive Date: 20070817
  Receipt Date: 20070809
  Transmission Date: 20080115
  Serious: Yes (Death)
  Sender: FDA-Public Use
  Company Number: ES-ELI_LILLY_AND_COMPANY-ES200708002756

PATIENT
  Sex: Female

DRUGS (2)
  1. GEMZAR [Suspect]
     Indication: BREAST CANCER
     Dosage: 2500 MG/M2, UNK
     Route: 042
  2. VINORELBINE [Concomitant]
     Indication: BREAST CANCER
     Dosage: 30 MG/M2, UNK
     Route: 040

REACTIONS (1)
  - ASPIRATION [None]
